FAERS Safety Report 21766774 (Version 1)
Quarter: 2022Q4

REPORT INFORMATION
  Report Type: Spontaneous
  Country: ES (occurrence: ES)
  Receive Date: 20221222
  Receipt Date: 20221222
  Transmission Date: 20230112
  Serious: Yes (Other)
  Sender: FDA-Public Use
  Company Number: None

PATIENT
  Age: 39 Year
  Sex: Female

DRUGS (4)
  1. SULFASALAZINE [Suspect]
     Active Substance: SULFASALAZINE
     Indication: Colitis
     Dosage: UNK
     Route: 048
     Dates: start: 20191111, end: 20191213
  2. SULFASALAZINE [Suspect]
     Active Substance: SULFASALAZINE
     Indication: Colitis ulcerative
  3. SULFASALAZINE [Suspect]
     Active Substance: SULFASALAZINE
     Indication: Synovitis
  4. SULFASALAZINE [Suspect]
     Active Substance: SULFASALAZINE
     Indication: Raynaud^s phenomenon

REACTIONS (2)
  - Systemic lupus erythematosus [Not Recovered/Not Resolved]
  - Lupus-like syndrome [Not Recovered/Not Resolved]

NARRATIVE: CASE EVENT DATE: 20191213
